FAERS Safety Report 17835880 (Version 7)
Quarter: 2022Q1

REPORT INFORMATION
  Report Type: Spontaneous
  Country: US (occurrence: US)
  Receive Date: 20200528
  Receipt Date: 20220125
  Transmission Date: 20220424
  Serious: No
  Sender: FDA-Public Use
  Company Number: US-PFIZER INC-2018399264

PATIENT
  Age: 13 Year
  Sex: Male
  Weight: 54.422 kg

DRUGS (4)
  1. GENOTROPIN [Suspect]
     Active Substance: SOMATROPIN
     Indication: Growth hormone deficiency
     Dosage: 2 MG, 6 DAYS A WEEK
     Dates: start: 20180120
  2. GENOTROPIN [Suspect]
     Active Substance: SOMATROPIN
     Dosage: 2 MG, 6 DAYS A WEEK
     Dates: start: 2018
  3. GENOTROPIN [Suspect]
     Active Substance: SOMATROPIN
     Dosage: 1.8MG INJECTION-1 DAY + 2.0 MG-OTHER DAY, 6 DAYS A WEEK WITH FRIDAYS OFF, ALTERNATING ARMS + THIGHS
     Dates: start: 20180120
  4. LEVOTHYROXINE SODIUM [Concomitant]
     Active Substance: LEVOTHYROXINE SODIUM
     Indication: Thyroid hormones decreased
     Dosage: 88 UG, DAILY
     Dates: start: 2018

REACTIONS (8)
  - Device use error [Unknown]
  - Poor quality device used [Unknown]
  - Drug dose omission by device [Unknown]
  - Incorrect dose administered by device [Unknown]
  - Wrong technique in device usage process [Unknown]
  - Expired device used [Unknown]
  - Device breakage [Unknown]
  - Device leakage [Unknown]

NARRATIVE: CASE EVENT DATE: 20180101
